FAERS Safety Report 14036191 (Version 1)
Quarter: 2017Q4

REPORT INFORMATION
  Report Type: Spontaneous
  Country: US (occurrence: US)
  Receive Date: 20171003
  Receipt Date: 20171003
  Transmission Date: 20180321
  Serious: No
  Sender: FDA-Public Use
  Company Number: US-ROCHE-1961604

PATIENT
  Age: 46 Year
  Sex: Male

DRUGS (4)
  1. OCREVUS [Suspect]
     Active Substance: OCRELIZUMAB
     Indication: MULTIPLE SCLEROSIS
     Dosage: DAY 1  DAY 15  AND THEN EVERY 6 MONTHS; ONGOING: YES
     Route: 042
     Dates: start: 20170630
  2. TYLENOL [Concomitant]
     Active Substance: ACETAMINOPHEN
     Dosage: WITH EVERY TREATMENT ;ONGOING: YES?PRETREATMENT
     Route: 048
     Dates: start: 20170630
  3. CLARITIN (UNITED STATES) [Concomitant]
     Dosage: WITH EVERY TREATMENT ;ONGOING: YES?PRETREATMENT
     Route: 048
     Dates: start: 20170630
  4. SOLU-MEDROL [Concomitant]
     Active Substance: METHYLPREDNISOLONE SODIUM SUCCINATE
     Dosage: YES?PRETREATMENT
     Route: 065
     Dates: start: 20170630

REACTIONS (5)
  - Ear discomfort [Recovered/Resolved]
  - Rash [Recovered/Resolved]
  - Throat irritation [Recovered/Resolved]
  - Urticaria [Recovered/Resolved]
  - Pruritus [Recovered/Resolved]

NARRATIVE: CASE EVENT DATE: 20170630
